FAERS Safety Report 9669411 (Version 1)
Quarter: 2013Q4

REPORT INFORMATION
  Report Type: Spontaneous
  Country: US (occurrence: US)
  Receive Date: 20131105
  Receipt Date: 20131105
  Transmission Date: 20140711
  Serious: No
  Sender: FDA-Public Use
  Company Number: US-TEVA-441630USA

PATIENT
  Age: 39 Year
  Sex: Female
  Weight: 53.12 kg

DRUGS (1)
  1. PARAGARD 380A [Suspect]
     Indication: CONTRACEPTION
     Dates: start: 20131022, end: 20131024

REACTIONS (1)
  - Device expulsion [Recovered/Resolved]
